FAERS Safety Report 8970045 (Version 1)
Quarter: 2012Q4

REPORT INFORMATION
  Report Type: 
  Country: US (occurrence: US)
  Receive Date: 20121218
  Receipt Date: 20121218
  Transmission Date: 20130627
  Serious: No
  Sender: FDA-Public Use
  Company Number: US-BRISTOL-MYERS SQUIBB COMPANY-16209652

PATIENT
  Age: 57 Year
  Sex: Female
  Weight: 59 kg

DRUGS (5)
  1. ABILIFY [Suspect]
     Indication: MAJOR DEPRESSION
     Dosage: Prescription#: 311811
dose reduced to 2.5mg for 2yrs,1.25mg,0.5mg
May06-07(2mg)
2008(5mg for6mth)
     Route: 048
     Dates: start: 200605, end: 20110918
  2. ABILIFY [Suspect]
     Indication: PSYCHOTIC DISORDER
     Dosage: Prescription#: 311811
dose reduced to 2.5mg for 2yrs,1.25mg,0.5mg
May06-07(2mg)
2008(5mg for6mth)
     Route: 048
     Dates: start: 200605, end: 20110918
  3. ABILIFY [Suspect]
     Indication: PARANOIA
     Dosage: Prescription#: 311811
dose reduced to 2.5mg for 2yrs,1.25mg,0.5mg
May06-07(2mg)
2008(5mg for6mth)
     Route: 048
     Dates: start: 200605, end: 20110918
  4. QVAR [Concomitant]
     Indication: ASTHMA
  5. FLONASE [Concomitant]
     Indication: NASAL DISORDER

REACTIONS (7)
  - Tongue spasm [Recovered/Resolved]
  - Blood cholesterol increased [Unknown]
  - Alopecia [Unknown]
  - Diarrhoea [Unknown]
  - Weight increased [Unknown]
  - Back pain [Unknown]
  - Muscle spasms [Unknown]
